FAERS Safety Report 8518057-5 (Version None)
Quarter: 2012Q3

REPORT INFORMATION
  Report Type: 
  Country: None (occurrence: None)
  Receive Date: 20120718
  Receipt Date: 20110908
  Transmission Date: 20120928
  Serious: Yes (Hospitalization)
  Sender: FDA-Public Use
  Company Number: US-BRISTOL-MYERS SQUIBB COMPANY-16013815

PATIENT
  Age: 26 Year
  Sex: Female

DRUGS (2)
  1. COUMADIN [Suspect]
     Indication: PULMONARY EMBOLISM
     Dosage: STARTED 1MG THEN 13MG AND REDUCED TO 10MG,ALSO TAKEN 7.5MG
     Route: 048
     Dates: start: 20110811
  2. COUMADIN [Suspect]
     Indication: PULMONARY THROMBOSIS
     Dosage: STARTED 1MG THEN 13MG AND REDUCED TO 10MG,ALSO TAKEN 7.5MG
     Route: 048
     Dates: start: 20110811

REACTIONS (3)
  - MENORRHAGIA [None]
  - INTERNATIONAL NORMALISED RATIO INCREASED [None]
  - HEADACHE [None]
